FAERS Safety Report 7539549-1 (Version None)
Quarter: 2011Q2

REPORT INFORMATION
  Report Type: 
  Country: None (occurrence: None)
  Receive Date: 20110610
  Receipt Date: 20110527
  Transmission Date: 20111010
  Serious: Yes (Other)
  Sender: FDA-Public Use
  Company Number: DK-RANBAXY-2010RR-32847

PATIENT
  Sex: Female
  Weight: 95 kg

DRUGS (3)
  1. DESOGESTREL AND ETHINYL ESTRADIOL [Concomitant]
     Indication: ORAL CONTRACEPTION
     Dosage: UNK
     Route: 048
     Dates: start: 20020730
  2. SERTRALINE HYDROCHLORIDE [Suspect]
     Indication: DEPRESSION
     Dosage: 50 MG/DAY
     Dates: start: 20071101, end: 20080101
  3. SERTRALINE HYDROCHLORIDE [Suspect]
     Dosage: 75 MG/DAY
     Dates: start: 20080101

REACTIONS (1)
  - LOSS OF CONSCIOUSNESS [None]
